FAERS Safety Report 7960376-5 (Version None)
Quarter: 2011Q4

REPORT INFORMATION
  Report Type: 
  Country: None (occurrence: None)
  Receive Date: 20111206
  Receipt Date: 20111202
  Transmission Date: 20120403
  Serious: Yes (Other)
  Sender: FDA-Public Use
  Company Number: FR-ROCHE-1018395

PATIENT
  Age: 22 Year
  Sex: Female

DRUGS (14)
  1. AVASTIN [Suspect]
     Indication: OVARIAN CANCER
     Dosage: DAY 1- DAY 15, DOSE: 625 MG
     Route: 042
     Dates: start: 20110708
  2. AVASTIN [Suspect]
     Dosage: DAY 1- DAY 15, DOSE: 625 MG
     Route: 042
     Dates: start: 20110819
  3. AVASTIN [Suspect]
     Dosage: DAY 1- DAY 15, DOSE: 625 MG
     Route: 042
     Dates: start: 20111002
  4. SOLU-MEDROL [Concomitant]
     Dates: start: 20110705, end: 20110710
  5. DOXORUBICIN HYDROCHLORIDE [Suspect]
     Indication: OVARIAN CANCER
     Dosage: DAY 1-DAY 29, DOSE: 66 MG
     Route: 042
     Dates: start: 20110708
  6. AVASTIN [Suspect]
     Dosage: DAY 1- DAY 15, DOSE: 625 MG
     Route: 042
     Dates: start: 20110902
  7. AVASTIN [Suspect]
     Dosage: DAY 1- DAY 15, DOSE: 625 MG
     Route: 042
     Dates: start: 20111010
  8. CETIRIZINE HCL [Concomitant]
     Dates: start: 20110705, end: 20110710
  9. ZOFRAN [Concomitant]
     Dates: start: 20110705, end: 20110710
  10. ZOFRAN [Concomitant]
     Dates: start: 20110805, end: 20110810
  11. CETIRIZINE HCL [Concomitant]
     Dates: start: 20110805, end: 20110810
  12. AVASTIN [Suspect]
     Dosage: DAY 1- DAY 15, DOSE: 625 MG
     Route: 042
     Dates: start: 20110722
  13. SOLU-MEDROL [Concomitant]
     Dates: start: 20110805, end: 20110810
  14. CETIRIZINE HCL [Concomitant]

REACTIONS (2)
  - PALMAR-PLANTAR ERYTHRODYSAESTHESIA SYNDROME [None]
  - SKIN TOXICITY [None]
